FAERS Safety Report 25859135 (Version 1)
Quarter: 2025Q3

REPORT INFORMATION
  Report Type: Spontaneous
  Country: IN (occurrence: IN)
  Receive Date: 20250929
  Receipt Date: 20250929
  Transmission Date: 20251021
  Serious: Yes (Other)
  Sender: NATCO PHARMA
  Company Number: IN-NATCO-000040

PATIENT
  Age: 60 Year
  Sex: Female

DRUGS (1)
  1. FLUOXETINE [Suspect]
     Active Substance: FLUOXETINE HYDROCHLORIDE
     Indication: Compulsive sexual behaviour
     Dosage: TABLET FLUOXETINE 20 MG/DAY
     Route: 048

REACTIONS (7)
  - Hepatic cirrhosis [Recovered/Resolved]
  - Metabolic dysfunction-associated steatohepatitis [Recovered/Resolved]
  - Splenomegaly [Recovering/Resolving]
  - Pleural effusion [Recovering/Resolving]
  - Compulsive sexual behaviour [Recovering/Resolving]
  - Condition aggravated [Recovering/Resolving]
  - Treatment noncompliance [Unknown]
